FAERS Safety Report 8426312-2 (Version None)
Quarter: 2012Q2

REPORT INFORMATION
  Report Type: 
  Country: None (occurrence: None)
  Receive Date: 20120611
  Receipt Date: 20120605
  Transmission Date: 20120825
  Serious: Yes (Hospitalization, Other)
  Sender: FDA-Public Use
  Company Number: DE-SANOFI-AVENTIS-2012SA016235

PATIENT
  Sex: Male
  Weight: 75 kg

DRUGS (10)
  1. CARVEDILOL [Concomitant]
     Indication: HYPERTENSION
     Dosage: DOSE: 25
  2. TORSEMIDE [Concomitant]
     Dosage: DOSE: 10
  3. ELIGARD [Suspect]
     Route: 065
     Dates: start: 20110719
  4. ELIGARD [Suspect]
     Route: 065
     Dates: start: 20111011
  5. ENALAPRIL MALEATE [Concomitant]
     Dosage: DOSE: 10
  6. THERAPEUTIC RADIOPHARMACEUTICALS [Concomitant]
  7. DIGIMERCK [Concomitant]
  8. MARCUMAR [Concomitant]
     Dosage: FOR STATE AFTER 2 X CARCINOMA
  9. HYDROCHLOROTHIAZIDE [Concomitant]
     Dosage: DOSE: 145
  10. ELIGARD [Suspect]
     Route: 065
     Dates: start: 20110412

REACTIONS (7)
  - PAIN [None]
  - ABSCESS [None]
  - SYMPHYSIOLYSIS [None]
  - INFECTION [None]
  - CATHETER PLACEMENT [None]
  - HAEMORRHAGE [None]
  - ANASTOMOTIC COMPLICATION [None]
